FAERS Safety Report 4279171-6 (Version None)
Quarter: 2004Q1

REPORT INFORMATION
  Report Type: 
  Country: None (occurrence: None)
  Receive Date: 20040123
  Receipt Date: 20040123
  Transmission Date: 20041129
  Serious: Yes (Hospitalization)
  Sender: FDA-Public Use
  Company Number: None

PATIENT
  Age: 3 Year
  Sex: Female

DRUGS (1)
  1. SEVOFLURANE [Suspect]
     Indication: ANAESTHESIA
     Dates: start: 20031024

REACTIONS (5)
  - ACIDOSIS [None]
  - BLOOD CREATINE PHOSPHOKINASE INCREASED [None]
  - BODY TEMPERATURE INCREASED [None]
  - HYPERTHERMIA MALIGNANT [None]
  - MYOGLOBIN URINE ABSENT [None]
